FAERS Safety Report 7621478-6 (Version None)
Quarter: 2011Q3

REPORT INFORMATION
  Report Type: 
  Country: None (occurrence: None)
  Receive Date: 20110719
  Receipt Date: 20110623
  Transmission Date: 20111222
  Serious: No
  Sender: FDA-Public Use
  Company Number: US-B.I. PHARMACEUTICALS,INC./RIDGEFIELD-2011-BP-14980BP

PATIENT
  Sex: Female

DRUGS (21)
  1. PAROXETINE HCL [Concomitant]
     Route: 048
     Dates: start: 20081010
  2. XOPENEX [Concomitant]
     Indication: DYSPNOEA
     Dosage: 2 PUF
     Route: 055
     Dates: start: 20100623
  3. ROPINIROLE HYDROCHLORIDE [Concomitant]
     Dosage: 0.75 MG
     Route: 048
     Dates: start: 20110330
  4. TYLENOL-500 [Concomitant]
     Indication: PAIN
     Route: 048
     Dates: start: 20070222
  5. FOSAMAX [Concomitant]
     Route: 048
     Dates: start: 20100301
  6. ARTIFICIAL TEARS [Concomitant]
     Indication: DRY EYE
     Dates: start: 20100301
  7. GABAPENTIN [Concomitant]
     Dosage: 300 MG
     Route: 048
     Dates: start: 20100210
  8. MULTI-VITAMIN [Concomitant]
     Route: 048
     Dates: start: 20100301
  9. CALCIUM CARBONATE [Concomitant]
     Dosage: 600 MG
     Route: 048
     Dates: start: 20051103
  10. REMERON [Concomitant]
     Dosage: 15 MG
     Route: 048
     Dates: start: 20071017
  11. LEVOTHYROXINE SODIUM [Concomitant]
     Dosage: 0.1 MG
     Route: 048
     Dates: start: 20080208
  12. SPIRIVA [Suspect]
     Indication: CHRONIC OBSTRUCTIVE PULMONARY DISEASE
     Dosage: 18 MCG
     Route: 055
  13. ZOCOR [Concomitant]
     Dosage: 20 MG
     Route: 048
     Dates: start: 20071017
  14. CALCIUM CARBONATE [Concomitant]
     Indication: DYSPEPSIA
     Route: 048
     Dates: start: 20070212
  15. SPIRIVA [Suspect]
     Indication: EMPHYSEMA
  16. ATENOLOL [Concomitant]
     Dosage: 25 MG
     Route: 048
     Dates: start: 20051110
  17. POTASSIUM CHLORIDE [Concomitant]
     Dosage: 10 MEQ
     Route: 048
     Dates: start: 20080119
  18. METAMUCIL-2 [Concomitant]
     Route: 048
     Dates: start: 20100301
  19. PROBIOTIC [Concomitant]
     Indication: FUNCTIONAL GASTROINTESTINAL DISORDER
     Route: 048
     Dates: start: 20100825
  20. NEXIUM [Concomitant]
     Dosage: 40 MG
     Route: 048
     Dates: start: 20081010
  21. DICYCLOMINE [Concomitant]
     Dosage: 20 MG
     Route: 048
     Dates: start: 20090911

REACTIONS (1)
  - DRUG INEFFECTIVE [None]
